FAERS Safety Report 5342499-2 (Version None)
Quarter: 2007Q2

REPORT INFORMATION
  Report Type: 
  Country: None (occurrence: None)
  Receive Date: 20070601
  Receipt Date: 20070518
  Transmission Date: 20071010
  Serious: Yes (Hospitalization)
  Sender: FDA-Public Use
  Company Number: US-SHR-US-2005-017496

PATIENT
  Age: 36 Year
  Sex: Female
  Weight: 77.098 kg

DRUGS (5)
  1. BETASERON [Suspect]
     Indication: RELAPSING-REMITTING MULTIPLE SCLEROSIS
     Dosage: UNK MIU, EVERY 2D
     Route: 058
     Dates: start: 20050222, end: 20050820
  2. BETASERON [Suspect]
     Dosage: UNK MIU, EVERY 2D
     Route: 058
     Dates: start: 20050825
  3. VICODIN ES [Concomitant]
     Indication: BACK PAIN
     Dosage: 1 TAB(S), AS REQ'D
     Route: 048
  4. IMIPRAMINE [Concomitant]
     Indication: DEPRESSION
     Dosage: 35 MG, BED T.
     Route: 048
  5. CORTICOSTEROIDS [Concomitant]
     Dates: start: 20050812, end: 20050814

REACTIONS (3)
  - DEHYDRATION [None]
  - HEAT EXPOSURE INJURY [None]
  - LOSS OF CONSCIOUSNESS [None]
